FAERS Safety Report 10154052 (Version 1)
Quarter: 2014Q2

REPORT INFORMATION
  Report Type: Spontaneous
  Country: FR (occurrence: FR)
  Receive Date: 20140506
  Receipt Date: 20140506
  Transmission Date: 20141212
  Serious: Yes (Hospitalization)
  Sender: FDA-Public Use
  Company Number: FR-UCBSA-119978

PATIENT
  Age: 40 Year
  Sex: Female

DRUGS (10)
  1. KEPPRA [Suspect]
     Indication: EPILEPSY
     Route: 048
     Dates: start: 201212
  2. URBANYL [Concomitant]
  3. DOLIPRANE [Concomitant]
     Indication: PAIN
     Dates: start: 20130701
  4. STILNOX [Concomitant]
     Dates: start: 20130513
  5. NUREFLEX [Concomitant]
     Dosage: 1-1-1
     Dates: start: 20130609
  6. HEXTRIL [Concomitant]
     Dates: start: 20130609
  7. SOLUPRED [Concomitant]
     Dosage: 2-0-0
     Dates: start: 20130624
  8. DAFALGAN CODEINE [Concomitant]
     Dates: start: 20130624
  9. VITAMIN K [Concomitant]
     Dates: start: 201309
  10. ALBUMIN [Concomitant]

REACTIONS (4)
  - Drug reaction with eosinophilia and systemic symptoms [Recovering/Resolving]
  - Liver injury [Recovering/Resolving]
  - Eosinophilia [Recovered/Resolved]
  - Partial seizures [Unknown]
